FAERS Safety Report 6194848-3 (Version None)
Quarter: 2009Q2

REPORT INFORMATION
  Report Type: 
  Country: None (occurrence: None)
  Receive Date: 20090519
  Receipt Date: 20080721
  Transmission Date: 20091009
  Serious: No
  Sender: FDA-Public Use
  Company Number: US-TYCO HEALTHCARE/MALLINCKRODT-T200801200

PATIENT

DRUGS (7)
  1. METHADONE [Suspect]
     Indication: BACK PAIN
     Dosage: 2 TABS Q8 HR
     Dates: start: 20071201, end: 20080622
  2. METHADONE [Suspect]
     Indication: ARTHRALGIA
  3. POTASSIUM CHLORIDE [Concomitant]
     Indication: BARTTER'S SYNDROME
     Dosage: 10 MEQ, 5 TIMES DAILY
     Route: 048
  4. PREMARIN [Concomitant]
     Indication: HYSTERECTOMY
     Dosage: .625 MG, QD
     Route: 048
  5. LEVOTHYROXINE SODIUM [Concomitant]
     Indication: THYROID DISORDER
     Dosage: 1.25 MG, QD
     Route: 048
  6. ZOLOFT [Concomitant]
     Indication: ANXIETY
     Dosage: 200 MG, QD
     Route: 048
  7. VITAMINS                           /90003601/ [Concomitant]
     Indication: SUPPLEMENTATION THERAPY
     Route: 048

REACTIONS (5)
  - DIZZINESS [None]
  - FATIGUE [None]
  - POISONING [None]
  - SEDATION [None]
  - SENSORY DISTURBANCE [None]
